FAERS Safety Report 6220293-8 (Version None)
Quarter: 2009Q2

REPORT INFORMATION
  Report Type: 
  Country: None (occurrence: None)
  Receive Date: 20090520
  Receipt Date: 20090513
  Transmission Date: 20091009
  Serious: Yes (Death)
  Sender: FDA-Public Use
  Company Number: THYM-1000874

PATIENT
  Age: 54 Year
  Sex: Male
  Weight: 60 kg

DRUGS (7)
  1. THYMOGLOBULIN [Suspect]
     Indication: STEM CELL TRANSPLANT
     Dosage: 2.5 MG/KG, QD, INTRAVENOUS
     Route: 042
     Dates: start: 20081210, end: 20081210
  2. FLUDARABINE PHOSPHATE [Concomitant]
  3. MELPHALAN (MELPHALAN) [Concomitant]
  4. METHYLPREDNISOLONE [Concomitant]
  5. SULFAMETHOPRIM (SULFAMETHOXAZOLE, TRIMETHOPRIM) [Concomitant]
  6. ACICLOVIR (ACICLOVIR SODIUM) [Concomitant]
  7. MICAFUNGIN SODIUM (MICAFUNGIN SODIUM) [Concomitant]

REACTIONS (7)
  - INFECTION [None]
  - LYMPHOMA [None]
  - MALIGNANT NEOPLASM PROGRESSION [None]
  - MULTI-ORGAN FAILURE [None]
  - PYREXIA [None]
  - TRANSPLANT FAILURE [None]
  - WHITE BLOOD CELL COUNT DECREASED [None]
